FAERS Safety Report 4322739-9 (Version None)
Quarter: 2004Q1

REPORT INFORMATION
  Report Type: 
  Country: None (occurrence: None)
  Receive Date: 20040324
  Receipt Date: 20040322
  Transmission Date: 20041129
  Serious: Yes (Hospitalization)
  Sender: FDA-Public Use
  Company Number: JP-GLAXOSMITHKLINE-A0504262A

PATIENT
  Age: 75 Year
  Sex: Female

DRUGS (5)
  1. NAVELBINE [Suspect]
     Route: 042
     Dates: start: 20030814, end: 20030930
  2. GEMZAR [Suspect]
     Route: 042
     Dates: start: 20030814, end: 20030930
  3. RAMOSETRON HYDROCHLORIDE [Concomitant]
     Dates: start: 20030708
  4. OZEX [Concomitant]
     Dates: start: 20030912, end: 20030917
  5. LOXONIN [Concomitant]
     Dates: start: 20030912, end: 20030917

REACTIONS (6)
  - ABDOMINAL PAIN [None]
  - CONSTIPATION [None]
  - DYSURIA [None]
  - NEUROGENIC BLADDER [None]
  - NEUTROPHIL COUNT DECREASED [None]
  - URINARY RETENTION [None]
